FAERS Safety Report 17400000 (Version 1)
Quarter: 2020Q1

REPORT INFORMATION
  Report Type: Spontaneous
  Country: ES (occurrence: ES)
  Receive Date: 20200211
  Receipt Date: 20200211
  Transmission Date: 20200409
  Serious: Yes (Other)
  Sender: FDA-Public Use
  Company Number: ES-ROCHE-2541203

PATIENT
  Age: 61 Year
  Sex: Female

DRUGS (8)
  1. METFORMIN [Concomitant]
     Active Substance: METFORMIN HYDROCHLORIDE
     Route: 065
     Dates: start: 20171220
  2. FENOFIBRATO [Concomitant]
     Active Substance: FENOFIBRATE
     Route: 065
     Dates: start: 20170310
  3. CITALOPRAM [Concomitant]
     Active Substance: CITALOPRAM HYDROBROMIDE
     Route: 065
     Dates: start: 20120420
  4. ESOMEPRAZOLE. [Concomitant]
     Active Substance: ESOMEPRAZOLE MAGNESIUM
     Route: 065
     Dates: start: 20190805
  5. HIDROFEROL [Concomitant]
     Active Substance: CALCIFEDIOL
     Route: 065
     Dates: start: 20181128
  6. BEVACIZUMAB. [Suspect]
     Active Substance: BEVACIZUMAB
     Indication: PRODUCT USED FOR UNKNOWN INDICATION
     Route: 042
     Dates: start: 20181122, end: 20190814
  7. LORATADINA [Concomitant]
     Active Substance: LORATADINE
     Route: 065
     Dates: start: 20190816
  8. CINITAPRIDA [CINITAPRIDE] [Concomitant]
     Route: 065
     Dates: start: 20190703

REACTIONS (6)
  - Hypertensive crisis [Recovered/Resolved]
  - Abdominal pain upper [Recovered/Resolved]
  - Headache [Recovered/Resolved]
  - Nausea [Recovered/Resolved]
  - Proteinuria [Recovering/Resolving]
  - Somnolence [Recovered/Resolved]

NARRATIVE: CASE EVENT DATE: 20190906
